FAERS Safety Report 9548095 (Version 1)
Quarter: 2013Q3

REPORT INFORMATION
  Report Type: Spontaneous
  Country: US (occurrence: None)
  Receive Date: 20130710
  Receipt Date: 20130710
  Transmission Date: 20140515
  Serious: Yes (Other)
  Sender: FDA-Public Use
  Company Number: US-ME-2012P1056330

PATIENT
  Age: 48 Year
  Sex: Male
  Weight: 77.11 kg

DRUGS (1)
  1. SOLODYN ER [Suspect]
     Indication: ACNE
     Dosage: 1 IN 1 D, ORAL
     Route: 048
     Dates: start: 20120802, end: 20120809

REACTIONS (1)
  - Serum sickness [None]
